FAERS Safety Report 17615186 (Version 9)
Quarter: 2023Q2

REPORT INFORMATION
  Report Type: Spontaneous
  Country: US (occurrence: US)
  Receive Date: 20200402
  Receipt Date: 20230502
  Transmission Date: 20230722
  Serious: Yes (Other)
  Sender: FDA-Public Use
  Company Number: US-PFIZER INC-2020133708

PATIENT
  Age: 68 Year
  Sex: Female

DRUGS (1)
  1. XELJANZ [Suspect]
     Active Substance: TOFACITINIB CITRATE
     Dosage: 5 MG
     Route: 048

REACTIONS (9)
  - Arthralgia [Unknown]
  - Eye laser surgery [Unknown]
  - Hip arthroplasty [Unknown]
  - Throat irritation [Unknown]
  - Drug hypersensitivity [Unknown]
  - Laryngitis [Unknown]
  - Gait disturbance [Unknown]
  - Dysphonia [Unknown]
  - Speech disorder [Unknown]
